FAERS Safety Report 9308328 (Version 2)
Quarter: 2013Q3

REPORT INFORMATION
  Report Type: Report from Study
  Country: JP (occurrence: JP)
  Receive Date: 20130524
  Receipt Date: 20130819
  Transmission Date: 20140515
  Serious: Yes (Hospitalization)
  Sender: FDA-Public Use
  Company Number: JP-VIIV HEALTHCARE LIMITED-B0494123A

PATIENT
  Age: 31 Year
  Sex: Male
  Weight: 52 kg

DRUGS (6)
  1. LEXIVA [Suspect]
     Indication: HIV INFECTION
     Dosage: 1400MG PER DAY
     Route: 048
     Dates: start: 20061012
  2. EPZICOM [Suspect]
     Indication: HIV INFECTION
     Route: 048
     Dates: start: 20061012
  3. NORVIR [Suspect]
     Indication: HIV INFECTION
     Route: 048
     Dates: start: 20061012, end: 20110824
  4. NORVIR [Concomitant]
     Indication: HIV INFECTION
     Route: 048
     Dates: start: 20110825
  5. RISPERDAL [Concomitant]
     Indication: SCHIZOPHRENIA
     Route: 048
  6. SEFMAZON [Concomitant]
     Indication: PROPHYLAXIS
     Dosage: 1G TWICE PER DAY
     Route: 042
     Dates: start: 20111220, end: 20111225

REACTIONS (3)
  - Herpes zoster [Recovering/Resolving]
  - Immune reconstitution inflammatory syndrome [Unknown]
  - Hypercholesterolaemia [Recovering/Resolving]
